FAERS Safety Report 9377659 (Version 1)
Quarter: 2013Q2

REPORT INFORMATION
  Report Type: Spontaneous
  Country: FR (occurrence: None)
  Receive Date: 20130625
  Receipt Date: 20130625
  Transmission Date: 20140414
  Serious: Yes (Other)
  Sender: FDA-Public Use
  Company Number: SYM-2013-04909

PATIENT
  Age: 36 Year
  Sex: Female

DRUGS (3)
  1. FLAGYL [Suspect]
     Dosage: 500 MG, 3 IN 1 D, PO
     Route: 048
     Dates: start: 20130323, end: 20130415
  2. CIPROFLOXACIN HYDROCHLORIDE [Suspect]
     Dosage: 500 MG, 2 IN 1 D, PO
     Route: 048
     Dates: start: 20130323, end: 20130415
  3. VANCOMYCIN HYDROCHLORIDE [Suspect]
     Dosage: 1 GM, 3 IN 1 D, IV
     Route: 042
     Dates: start: 20130323, end: 20130415

REACTIONS (2)
  - Rash erythematous [None]
  - Pyrexia [None]
